FAERS Safety Report 18693346 (Version 2)
Quarter: 2021Q1

REPORT INFORMATION
  Report Type: Spontaneous
  Country: US (occurrence: US)
  Receive Date: 20210104
  Receipt Date: 20210206
  Transmission Date: 20210419
  Serious: Yes (Hospitalization)
  Sender: FDA-Public Use
  Company Number: US-DRREDDYS-USA/USA/20/0130632

PATIENT
  Age: 70 Year
  Sex: Male

DRUGS (1)
  1. CARFILZOMIB [Suspect]
     Active Substance: CARFILZOMIB
     Indication: PLASMA CELL MYELOMA REFRACTORY

REACTIONS (3)
  - Ocular icterus [Recovered/Resolved]
  - Headache [Unknown]
  - Drug-induced liver injury [Recovered/Resolved]
